FAERS Safety Report 4387890-6 (Version None)
Quarter: 2004Q2

REPORT INFORMATION
  Report Type: 
  Country: None (occurrence: None)
  Receive Date: 20040607
  Receipt Date: 20031022
  Transmission Date: 20050107
  Serious: Yes (Other)
  Sender: FDA-Public Use
  Company Number: 349935

PATIENT

DRUGS (1)
  1. ACCUTANE [Suspect]
     Indication: ACNE
     Dosage: 20 MG 1 PER ONE DOSE ORAL
     Route: 048
     Dates: start: 19990615, end: 20030904

REACTIONS (1)
  - ABORTION SPONTANEOUS [None]
